FAERS Safety Report 10238552 (Version 1)
Quarter: 2014Q2

REPORT INFORMATION
  Report Type: Spontaneous
  Country: BR (occurrence: BR)
  Receive Date: 20140616
  Receipt Date: 20140616
  Transmission Date: 20141212
  Serious: Yes (Other)
  Sender: FDA-Public Use
  Company Number: BR-SA-2014SA074352

PATIENT
  Age: 90 Year
  Sex: Female
  Weight: 70 kg

DRUGS (6)
  1. LANTUS [Suspect]
     Indication: DIABETES MELLITUS
     Dosage: STRENGTH AND FORM: 3ML CARTRIDGE
     Route: 058
     Dates: start: 2009
  2. LANTUS SOLOSTAR [Suspect]
     Indication: DIABETES MELLITUS
     Route: 058
  3. SOLOSTAR [Concomitant]
  4. CLIKSTAR [Concomitant]
     Indication: DEVICE THERAPY
  5. ALL OTHER THERAPEUTIC PRODUCTS [Concomitant]
     Indication: NUTRITIONAL SUPPLEMENTATION
     Route: 048
  6. ALL OTHER THERAPEUTIC PRODUCTS [Concomitant]
     Indication: UNEVALUABLE EVENT
     Dosage: STARTED MORE THAN 1 YEAR AGO
     Route: 058

REACTIONS (5)
  - Femur fracture [Recovered/Resolved]
  - Fall [Unknown]
  - Limb injury [Not Recovered/Not Resolved]
  - Injection site pain [Recovered/Resolved]
  - Drug administration error [Unknown]
